FAERS Safety Report 11193551 (Version 2)
Quarter: 2015Q3

REPORT INFORMATION
  Report Type: Report from Study
  Country: TR (occurrence: TR)
  Receive Date: 20150616
  Receipt Date: 20150806
  Transmission Date: 20151125
  Serious: Yes (Other)
  Sender: FDA-Public Use
  Company Number: PHHY2015TR067774

PATIENT
  Sex: Male
  Weight: 62 kg

DRUGS (1)
  1. SOMATROPIN [Suspect]
     Active Substance: SOMATROPIN
     Indication: GROWTH HORMONE DEFICIENCY
     Dosage: 1.35 MG, QD (ONCE DAILY)
     Route: 058
     Dates: start: 20150410

REACTIONS (1)
  - Gynaecomastia [Not Recovered/Not Resolved]
